FAERS Safety Report 18439398 (Version 1)
Quarter: 2020Q4

REPORT INFORMATION
  Report Type: Spontaneous
  Country: JP (occurrence: JP)
  Receive Date: 20201028
  Receipt Date: 20201028
  Transmission Date: 20210114
  Serious: Yes (Hospitalization)
  Sender: FDA-Public Use
  Company Number: JP-CELLTRION INC.-2020JP029987

PATIENT

DRUGS (2)
  1. INFLIXIMAB BS FOR I.V. INFUSION100 MG [NK] [Suspect]
     Active Substance: INFLIXIMAB
     Indication: INFLAMMATORY BOWEL DISEASE
     Dosage: 5 MG/KG BIMONTHLY INTIATED AT AGE 23 MONTHS
     Route: 065
  2. INFLIXIMAB BS FOR I.V. INFUSION100 MG [NK] [Suspect]
     Active Substance: INFLIXIMAB
     Dosage: 5 MG/KG (ONE MONTH PRIOR TO ADMISSION)
     Route: 065

REACTIONS (4)
  - Pyrexia [Recovering/Resolving]
  - Product use issue [Unknown]
  - Off label use [Unknown]
  - Lymphadenitis [Recovering/Resolving]
